FAERS Safety Report 11846592 (Version 2)
Quarter: 2016Q2

REPORT INFORMATION
  Report Type: Report from Study
  Country: JP (occurrence: JP)
  Receive Date: 20151217
  Receipt Date: 20160415
  Transmission Date: 20160815
  Serious: Yes (Other)
  Sender: FDA-Public Use
  Company Number: JP-PFIZER INC-2015444265

PATIENT
  Age: 84 Year
  Sex: Female

DRUGS (2)
  1. CLOTIAZEPAM [Suspect]
     Active Substance: CLOTIAZEPAM
     Indication: DEMENTIA ALZHEIMER^S TYPE
     Dosage: UNK
  2. TRIAZOLAM. [Suspect]
     Active Substance: TRIAZOLAM
     Indication: DEMENTIA ALZHEIMER^S TYPE
     Dosage: UNK

REACTIONS (4)
  - Skin ulcer [Recovered/Resolved]
  - Intentional product misuse [Recovered/Resolved]
  - Blood creatine phosphokinase increased [Unknown]
  - Akinesia [Recovered/Resolved]
